FAERS Safety Report 12265955 (Version 1)
Quarter: 2016Q2

REPORT INFORMATION
  Report Type: Spontaneous
  Country: JP (occurrence: JP)
  Receive Date: 20160413
  Receipt Date: 20160413
  Transmission Date: 20160815
  Serious: Yes (Life-Threatening)
  Sender: FDA-Public Use
  Company Number: JP-BRISTOL-MYERS SQUIBB COMPANY-BMS-2015-034258

PATIENT
  Age: 75 Year
  Sex: Female

DRUGS (3)
  1. AMLODINE                           /00972402/ [Concomitant]
     Indication: PRODUCT USED FOR UNKNOWN INDICATION
     Dosage: 2.5 MG, BID (TABLET)
     Route: 048
  2. DAKLINZA [Suspect]
     Active Substance: DACLATASVIR
     Indication: HEPATITIS C
     Dosage: 60 MG, QD (TABLET)
     Route: 048
     Dates: start: 20141114, end: 20150509
  3. SUNVEPRA [Suspect]
     Active Substance: ASUNAPREVIR
     Indication: HEPATITIS C
     Dosage: 100 MG, BID (CAPSULE)
     Route: 048
     Dates: start: 20141114, end: 20150509

REACTIONS (2)
  - Thrombocytopenic purpura [Recovering/Resolving]
  - Interleukin-2 receptor increased [Not Recovered/Not Resolved]

NARRATIVE: CASE EVENT DATE: 20150506
